FAERS Safety Report 15308030 (Version 1)
Quarter: 2018Q3

REPORT INFORMATION
  Report Type: Spontaneous
  Country: US (occurrence: US)
  Receive Date: 20180822
  Receipt Date: 20180822
  Transmission Date: 20181010
  Serious: Yes (Other)
  Sender: FDA-Public Use
  Company Number: US-SHIRE-US201832411

PATIENT
  Sex: Female

DRUGS (2)
  1. INTUNIV [Suspect]
     Active Substance: GUANFACINE HYDROCHLORIDE
     Indication: HYPERTENSION
     Dosage: 0.5 MG (CUTTING 2 MG IN SECTIONS), 4X/DAY:QID
     Route: 065
     Dates: start: 20180801
  2. INTUNIV [Suspect]
     Active Substance: GUANFACINE HYDROCHLORIDE
     Indication: OFF LABEL USE

REACTIONS (3)
  - Neuropathy peripheral [Unknown]
  - Wrong technique in product usage process [Unknown]
  - Off label use [Unknown]
